FAERS Safety Report 8525000-1 (Version None)
Quarter: 2012Q3

REPORT INFORMATION
  Report Type: 
  Country: None (occurrence: None)
  Receive Date: 20120720
  Receipt Date: 20120718
  Transmission Date: 20120928
  Serious: Yes (Other)
  Sender: FDA-Public Use
  Company Number: GB-ROCHE-1089949

PATIENT
  Age: 46 Year
  Sex: Female
  Weight: 84.6 kg

DRUGS (3)
  1. BEVACIZUMAB [Suspect]
     Indication: OVARIAN CANCER
     Dosage: ON DAY 1
     Route: 042
     Dates: start: 20120306, end: 20120417
  2. GEMCITABINE [Concomitant]
     Indication: OVARIAN CANCER
     Dosage: ON DAY 1 AND 8
     Route: 042
     Dates: start: 20120306, end: 20120417
  3. CARBOPLATIN [Concomitant]
     Indication: OVARIAN CANCER
     Dosage: ON DAY 1
     Route: 042
     Dates: start: 20120306, end: 20120417

REACTIONS (1)
  - NEPHRITIC SYNDROME [None]
